FAERS Safety Report 21905805 (Version 1)
Quarter: 2023Q1

REPORT INFORMATION
  Report Type: Spontaneous
  Country: BE (occurrence: BE)
  Receive Date: 20230124
  Receipt Date: 20230124
  Transmission Date: 20230418
  Serious: Yes (Life-Threatening, Hospitalization)
  Sender: FDA-Public Use
  Company Number: BE-Merck Healthcare KGaA-9378373

PATIENT
  Age: 53 Year
  Sex: Female

DRUGS (1)
  1. ERBITUX [Suspect]
     Active Substance: CETUXIMAB
     Indication: Head and neck cancer metastatic
     Dosage: 500 MG/M2, 2/M
     Route: 042
     Dates: start: 202109, end: 20221107

REACTIONS (3)
  - Respiratory distress [Unknown]
  - Respiratory complication associated with device [Unknown]
  - Off label use [Unknown]
